FAERS Safety Report 23334610 (Version 2)
Quarter: 2024Q1

REPORT INFORMATION
  Report Type: Other
  Country: US (occurrence: US)
  Receive Date: 20231224
  Receipt Date: 20240126
  Transmission Date: 20240410
  Serious: No
  Sender: FDA-Public Use
  Company Number: US-TRAVERE-2023TVT00733

PATIENT
  Age: 52 Year
  Sex: Female

DRUGS (4)
  1. CHOLBAM [Suspect]
     Active Substance: CHOLIC ACID
     Indication: Inborn error of metabolism
     Dosage: 250 MG
     Route: 048
     Dates: start: 20190921
  2. CHOLECALCIFEROL [Concomitant]
     Active Substance: CHOLECALCIFEROL
  3. LORAZEPAM [Concomitant]
     Active Substance: LORAZEPAM
  4. MINERALS\VITAMINS [Concomitant]
     Active Substance: MINERALS\VITAMINS

REACTIONS (2)
  - COVID-19 [Recovered/Resolved]
  - Confusional state [Unknown]

NARRATIVE: CASE EVENT DATE: 20231101
